FAERS Safety Report 10033329 (Version 2)
Quarter: 2014Q2

REPORT INFORMATION
  Report Type: Spontaneous
  Country: DE (occurrence: DE)
  Receive Date: 20140325
  Receipt Date: 20140513
  Transmission Date: 20141212
  Serious: Yes (Other)
  Sender: FDA-Public Use
  Company Number: DE-ROCHE-1369836

PATIENT
  Age: 80 Year
  Sex: Male

DRUGS (4)
  1. LUCENTIS [Suspect]
     Indication: AGE-RELATED MACULAR DEGENERATION
     Route: 050
     Dates: start: 20130625
  2. LUCENTIS [Suspect]
     Route: 050
     Dates: start: 20130730
  3. LUCENTIS [Suspect]
     Route: 050
     Dates: start: 20130827
  4. EFUDIX [Concomitant]
     Indication: ACTINIC KERATOSIS

REACTIONS (1)
  - Age-related macular degeneration [Unknown]
